FAERS Safety Report 7319710-1 (Version None)
Quarter: 2011Q1

REPORT INFORMATION
  Report Type: 
  Country: None (occurrence: None)
  Receive Date: 20110228
  Receipt Date: 20100928
  Transmission Date: 20110831
  Serious: No
  Sender: FDA-Public Use
  Company Number: A0876505A

PATIENT
  Age: 36 Year
  Sex: Male

DRUGS (2)
  1. LAMICTAL [Suspect]
     Dosage: 200MG TWICE PER DAY
     Route: 048
     Dates: start: 20020101
  2. NO CONCURRENT MEDICATION [Concomitant]

REACTIONS (1)
  - ERECTILE DYSFUNCTION [None]
